FAERS Safety Report 6902539-3 (Version None)
Quarter: 2010Q3

REPORT INFORMATION
  Report Type: 
  Country: None (occurrence: None)
  Receive Date: 20100730
  Receipt Date: 20100715
  Transmission Date: 20110219
  Serious: Yes (Death, Hospitalization, Disabling)
  Sender: FDA-Public Use
  Company Number: 2009AC000410

PATIENT
  Age: 82 Year
  Sex: Male

DRUGS (18)
  1. DIGOXIN [Suspect]
     Dosage: QD; PO
     Route: 048
     Dates: start: 20040101, end: 20071001
  2. DIGOXIN [Suspect]
     Dosage: 0.250 MG; QD; PO
     Route: 048
     Dates: start: 20071007, end: 20071011
  3. FUROSEMIDE [Concomitant]
  4. VASOTEC [Concomitant]
  5. NITRO-DUR [Concomitant]
  6. PROSCAR [Concomitant]
  7. BUMEX [Concomitant]
  8. COREG [Concomitant]
  9. DOXAZOSIN [Concomitant]
  10. ADVAIR DISKUS 100/50 [Concomitant]
  11. K-DUR [Concomitant]
  12. IMODIUM [Concomitant]
  13. DOBUTREX [Concomitant]
  14. METOPROLOL [Concomitant]
  15. VESICARE [Concomitant]
  16. COLCHICINE [Concomitant]
  17. MULTI-VITAMIN [Concomitant]
  18. FLOMAX [Concomitant]

REACTIONS (30)
  - ANAEMIA [None]
  - ANXIETY [None]
  - ASCITES [None]
  - BLOOD ALKALINE PHOSPHATASE INCREASED [None]
  - BLOOD URIC ACID INCREASED [None]
  - BUNDLE BRANCH BLOCK LEFT [None]
  - CARDIAC FAILURE CONGESTIVE [None]
  - CARDIAC MURMUR [None]
  - CARDIO-RESPIRATORY ARREST [None]
  - CARDIOMEGALY [None]
  - CARDIOMYOPATHY [None]
  - DEMENTIA [None]
  - DYSPNOEA [None]
  - DYSPNOEA EXERTIONAL [None]
  - DYSPNOEA PAROXYSMAL NOCTURNAL [None]
  - ECONOMIC PROBLEM [None]
  - EMOTIONAL DISORDER [None]
  - GENERALISED OEDEMA [None]
  - GOUT [None]
  - HYDRONEPHROSIS [None]
  - INJURY [None]
  - LOBAR PNEUMONIA [None]
  - MYOCARDIAL ISCHAEMIA [None]
  - ORTHOPNOEA [None]
  - PAIN [None]
  - PERICARDIAL EFFUSION [None]
  - PLEURAL EFFUSION [None]
  - PULMONARY HYPERTENSION [None]
  - RENAL FAILURE [None]
  - VENTRICULAR HYPERTROPHY [None]
